FAERS Safety Report 5511048-8 (Version None)
Quarter: 2007Q4

REPORT INFORMATION
  Report Type: 
  Country: None (occurrence: None)
  Receive Date: 20071109
  Receipt Date: 20071029
  Transmission Date: 20080405
  Serious: Yes (Other)
  Sender: FDA-Public Use
  Company Number: US-BAYER-200713521BCC

PATIENT
  Age: 68 Year
  Sex: Female

DRUGS (7)
  1. BRONKAID [Suspect]
     Indication: ASTHMA
     Dosage: TOTAL DAILY DOSE: 50 MG  UNIT DOSE: 25 MG
     Route: 048
     Dates: start: 20071001
  2. LASIX [Concomitant]
  3. VITAMINS [Concomitant]
  4. MINERAL TAB [Concomitant]
  5. K-DUR 10 [Concomitant]
  6. SINGULAIR [Concomitant]
  7. ATROVENT [Concomitant]

REACTIONS (2)
  - BLOOD POTASSIUM DECREASED [None]
  - MUSCLE SPASMS [None]
